FAERS Safety Report 13085633 (Version 1)
Quarter: 2017Q1

REPORT INFORMATION
  Report Type: Spontaneous
  Country: IT (occurrence: IT)
  Receive Date: 20170104
  Receipt Date: 20170104
  Transmission Date: 20170428
  Serious: Yes (Hospitalization)
  Sender: FDA-Public Use
  Company Number: IT-ELI_LILLY_AND_COMPANY-IT201612010526

PATIENT
  Age: 49 Year
  Sex: Male
  Weight: 55 kg

DRUGS (6)
  1. SOLDESAM [Concomitant]
     Active Substance: DEXAMETHASONE
     Indication: PREMEDICATION
     Dosage: UNK UNK, UNKNOWN
     Route: 065
  2. ERBITUX [Suspect]
     Active Substance: CETUXIMAB
     Indication: LIP AND/OR ORAL CAVITY CANCER
     Dosage: 370 MG, WEEKLY (1/W)
     Route: 042
     Dates: start: 20161017
  3. RANITIDINE. [Concomitant]
     Active Substance: RANITIDINE
     Indication: PREMEDICATION
     Dosage: UNK UNK, UNKNOWN
     Route: 042
     Dates: start: 20161017
  4. CISPLATINUM ACCORD [Suspect]
     Active Substance: CISPLATIN
     Indication: ORAL NEOPLASM
     Dosage: UNK UNK, UNKNOWN
     Route: 065
     Dates: start: 2015
  5. CISPLATINUM ACCORD [Suspect]
     Active Substance: CISPLATIN
     Indication: ORAL NEOPLASM
     Dosage: 110 MG, CYCLICAL
     Route: 042
     Dates: start: 20160501, end: 201606
  6. CISPLATINUM ACCORD [Suspect]
     Active Substance: CISPLATIN
     Dosage: 110 MG, CYCLICAL
     Route: 042
     Dates: start: 20161128, end: 20161219

REACTIONS (5)
  - Pruritus [Recovering/Resolving]
  - Bronchostenosis [Recovering/Resolving]
  - Dyspnoea [Recovering/Resolving]
  - Confusional state [Recovering/Resolving]
  - Speech disorder [Recovering/Resolving]

NARRATIVE: CASE EVENT DATE: 20161219
